FAERS Safety Report 22289160 (Version 1)
Quarter: 2023Q2

REPORT INFORMATION
  Report Type: Spontaneous
  Country: US (occurrence: None)
  Receive Date: 20230504
  Receipt Date: 20230504
  Transmission Date: 20230722
  Serious: No
  Sender: FDA-Public Use
  Company Number: None

PATIENT
  Age: 84 Year
  Sex: Male
  Weight: 59.87 kg

DRUGS (5)
  1. ODOMZO [Suspect]
     Active Substance: SONIDEGIB
     Indication: Basal cell carcinoma
     Dosage: 200MG DAILY ORAL?
     Route: 048
  2. CHORELLA [Concomitant]
  3. SILDENAFIL [Concomitant]
     Active Substance: SILDENAFIL
  4. HERBALS\SPIRULINA [Concomitant]
     Active Substance: HERBALS\SPIRULINA
  5. TRAZODONE [Concomitant]
     Active Substance: TRAZODONE HYDROCHLORIDE

REACTIONS (1)
  - Drug ineffective [None]
